FAERS Safety Report 4500513-8 (Version None)
Quarter: 2004Q4

REPORT INFORMATION
  Report Type: 
  Country: None (occurrence: None)
  Receive Date: 20041112
  Receipt Date: 20041112
  Transmission Date: 20050328
  Serious: Yes (Death)
  Sender: FDA-Public Use
  Company Number: None

PATIENT
  Age: 57 Year
  Sex: Female
  Weight: 56.6996 kg

DRUGS (2)
  1. DEXAMETHASONE [Suspect]
  2. LITHIUM [Suspect]

REACTIONS (2)
  - COMPLETED SUICIDE [None]
  - PSYCHOTIC DISORDER [None]
